FAERS Safety Report 5921969-X (Version None)
Quarter: 2008Q3

REPORT INFORMATION
  Report Type: 
  Country: None (occurrence: None)
  Receive Date: 20080909
  Receipt Date: 20080715
  Transmission Date: 20090109
  Serious: Yes (Hospitalization)
  Sender: FDA-Public Use
  Company Number: 163-20785-08061419

PATIENT
  Age: 72 Year
  Sex: Male

DRUGS (5)
  1. THALOMID [Suspect]
     Indication: MULTIPLE MYELOMA
     Dosage: 200 MG, 2 IN 1 D, ORAL
     Route: 048
     Dates: start: 20080602
  2. BACTRIM [Suspect]
     Indication: PYREXIA
     Dates: start: 20080501, end: 20080601
  3. COLACE (DOCUSATE SODIUM) [Concomitant]
  4. DEXAMETHASONE TAB [Concomitant]
  5. ARANESP [Concomitant]

REACTIONS (3)
  - PYREXIA [None]
  - RASH [None]
  - SOMNOLENCE [None]
